FAERS Safety Report 14218439 (Version 1)
Quarter: 2017Q4

REPORT INFORMATION
  Report Type: Spontaneous
  Country: US (occurrence: US)
  Receive Date: 20171123
  Receipt Date: 20171123
  Transmission Date: 20180321
  Serious: Yes (Other)
  Sender: FDA-Public Use
  Company Number: US-TEVA-2017-US-826280

PATIENT
  Age: 61 Year
  Sex: Female

DRUGS (2)
  1. WARFARIN [Suspect]
     Active Substance: WARFARIN
     Route: 065
  2. ASPIRIN. [Concomitant]
     Active Substance: ASPIRIN
     Route: 065

REACTIONS (4)
  - Lacrimal haemorrhage [Recovered/Resolved]
  - Diplopia [Recovering/Resolving]
  - Eye haemorrhage [Recovered/Resolved]
  - Exophthalmos [Recovered/Resolved]
